FAERS Safety Report 8222895-6 (Version None)
Quarter: 2012Q1

REPORT INFORMATION
  Report Type: 
  Country: None (occurrence: None)
  Receive Date: 20120320
  Receipt Date: 20120306
  Transmission Date: 20120608
  Serious: Yes (Other)
  Sender: FDA-Public Use
  Company Number: CHPA2012US004334

PATIENT
  Sex: Female

DRUGS (2)
  1. EXCEDRIN EXTRA STRENGTH TABLETS [Suspect]
     Indication: HEADACHE
     Dosage: 1-2 DF, PRN
     Route: 048
     Dates: end: 20111101
  2. DRUG THERAPY NOS [Concomitant]
     Dosage: UNK DF, UNK
     Dates: start: 20110101

REACTIONS (7)
  - UNDERDOSE [None]
  - GASTROINTESTINAL EROSION [None]
  - NAUSEA [None]
  - GASTROOESOPHAGEAL REFLUX DISEASE [None]
  - CHILLS [None]
  - INFLUENZA LIKE ILLNESS [None]
  - DIARRHOEA [None]
